FAERS Safety Report 5496236-1 (Version None)
Quarter: 2007Q4

REPORT INFORMATION
  Report Type: 
  Country: None (occurrence: None)
  Receive Date: 20071025
  Receipt Date: 20070315
  Transmission Date: 20080405
  Serious: No
  Sender: FDA-Public Use
  Company Number: A0643355A

PATIENT
  Age: 70 Year
  Sex: Male

DRUGS (12)
  1. ADVAIR DISKUS 100/50 [Suspect]
     Indication: CHRONIC OBSTRUCTIVE PULMONARY DISEASE
     Dosage: 1PUFF TWICE PER DAY
     Route: 055
     Dates: start: 19990101
  2. SPIRIVA [Concomitant]
  3. ALBUTEROL [Concomitant]
  4. NORVASC [Concomitant]
  5. AVALIDE [Concomitant]
  6. ASACOL [Concomitant]
  7. LIPITOR [Concomitant]
  8. FLOMAX [Concomitant]
  9. VITAMIN CAP [Concomitant]
  10. SAW PALMETTO [Concomitant]
  11. GLUCOSAMINE [Concomitant]
  12. PEPCID [Concomitant]

REACTIONS (2)
  - DRUG INEFFECTIVE [None]
  - RESPIRATORY TRACT CONGESTION [None]
